FAERS Safety Report 10663154 (Version 2)
Quarter: 2015Q1

REPORT INFORMATION
  Report Type: Spontaneous
  Country: US (occurrence: US)
  Receive Date: 20141218
  Receipt Date: 20150114
  Transmission Date: 20150720
  Serious: No
  Sender: FDA-Public Use
  Company Number: US-009507513-1412USA006765

PATIENT

DRUGS (2)
  1. COREG [Suspect]
     Active Substance: CARVEDILOL
  2. JANUMET [Suspect]
     Active Substance: METFORMIN HYDROCHLORIDE\SITAGLIPTIN PHOSPHATE
     Dosage: 50/500 MG, ONE TABLET TWICE A DAY
     Route: 048
     Dates: start: 20140520

REACTIONS (5)
  - Drug dispensing error [Unknown]
  - Wrong drug administered [Unknown]
  - Blood pressure increased [Unknown]
  - Drug dose omission [Unknown]
  - Product quality issue [Unknown]

NARRATIVE: CASE EVENT DATE: 2014
